FAERS Safety Report 14844709 (Version 1)
Quarter: 2018Q2

REPORT INFORMATION
  Report Type: Report from Study
  Country: None (occurrence: GB)
  Receive Date: 20180504
  Receipt Date: 20180504
  Transmission Date: 20180711
  Serious: Yes (Other)
  Sender: FDA-Public Use
  Company Number: GB-ABBVIE-17K-167-2066932-00

PATIENT
  Sex: Female

DRUGS (2)
  1. HUMIRA [Suspect]
     Active Substance: ADALIMUMAB
     Indication: CROHN^S DISEASE
     Route: 058
     Dates: start: 2017, end: 2017
  2. HUMIRA [Suspect]
     Active Substance: ADALIMUMAB
     Route: 058
     Dates: start: 201801, end: 201801

REACTIONS (5)
  - Abdominal distension [Unknown]
  - Exposure during pregnancy [Unknown]
  - Wrong technique in product usage process [Unknown]
  - Gastric haemorrhage [Unknown]
  - Live birth [Unknown]

NARRATIVE: CASE EVENT DATE: 2017
